FAERS Safety Report 5698199-2 (Version None)
Quarter: 2008Q2

REPORT INFORMATION
  Report Type: 
  Country: None (occurrence: None)
  Receive Date: 20080408
  Receipt Date: 20080326
  Transmission Date: 20081010
  Serious: Yes (Other)
  Sender: FDA-Public Use
  Company Number: US-ELI_LILLY_AND_COMPANY-US200803005955

PATIENT
  Age: 75 Year
  Sex: Male

DRUGS (4)
  1. CYMBALTA [Suspect]
  2. LITHIUM CARBONATE [Concomitant]
  3. TOPAMAX [Concomitant]
  4. PROVIGIL [Concomitant]

REACTIONS (1)
  - PANCYTOPENIA [None]
